FAERS Safety Report 18707482 (Version 2)
Quarter: 2021Q1

REPORT INFORMATION
  Report Type: Spontaneous
  Country: FR (occurrence: FR)
  Receive Date: 20210106
  Receipt Date: 20210128
  Transmission Date: 20210419
  Serious: Yes (Other)
  Sender: FDA-Public Use
  Company Number: FR-009507513-2101FRA000495

PATIENT
  Sex: Female

DRUGS (1)
  1. DIPROSTENE [Suspect]
     Active Substance: BETAMETHASONE DIPROPIONATE\BETAMETHASONE SODIUM PHOSPHATE
     Indication: KELOID SCAR
     Dosage: 1 VIAL
     Route: 058

REACTIONS (10)
  - Fatigue [Unknown]
  - Drug hypersensitivity [Unknown]
  - Sneezing [Unknown]
  - Bronchospasm [Unknown]
  - Syncope [Unknown]
  - Paraesthesia [Recovering/Resolving]
  - Dyspnoea [Recovering/Resolving]
  - Cough [Unknown]
  - Malaise [Unknown]
  - Hypersensitivity [Unknown]
